FAERS Safety Report 4413149-4 (Version None)
Quarter: 2004Q3

REPORT INFORMATION
  Report Type: 
  Country: None (occurrence: None)
  Receive Date: 20040802
  Receipt Date: 20040802
  Transmission Date: 20050211
  Serious: No
  Sender: FDA-Public Use
  Company Number: None

PATIENT
  Age: 73 Year
  Sex: Male

DRUGS (1)
  1. PERCOCET [Suspect]
     Indication: PAIN IN EXTREMITY
     Dosage: ONE DOSE TO TWO DOSES PO Q 6HOURS
     Route: 048

REACTIONS (5)
  - DEATH OF RELATIVE [None]
  - DRUG EFFECT DECREASED [None]
  - MENTAL DISORDER [None]
  - PAIN [None]
  - PHARMACEUTICAL PRODUCT COMPLAINT [None]
